FAERS Safety Report 23393927 (Version 2)
Quarter: 2024Q1

REPORT INFORMATION
  Report Type: Spontaneous
  Country: US (occurrence: US)
  Receive Date: 20240111
  Receipt Date: 20240126
  Transmission Date: 20240410
  Serious: No
  Sender: FDA-Public Use
  Company Number: US-PFIZER INC-PV202400002122

PATIENT
  Age: 56 Year
  Sex: Female

DRUGS (2)
  1. PREMARIN [Suspect]
     Active Substance: ESTROGENS, CONJUGATED
     Indication: Menopause
     Dosage: 1GM VAGINALLY FOR 21 DAYS, OFF 7 DAYS, 2X WEEK THEREAFTER
     Route: 067
  2. PREMARIN [Suspect]
     Active Substance: ESTROGENS, CONJUGATED
     Dosage: 1GM VAGINALLY FOR 21 DAYS, OFF 7 DAYS, 2X WEEK THEREAFTER
     Route: 067
     Dates: start: 20240101

REACTIONS (3)
  - Illness [Recovered/Resolved]
  - Fungal infection [Recovered/Resolved]
  - Off label use [Unknown]
